FAERS Safety Report 5950973-0 (Version None)
Quarter: 2008Q4

REPORT INFORMATION
  Report Type: 
  Country: None (occurrence: None)
  Receive Date: 20081110
  Receipt Date: 20081030
  Transmission Date: 20090506
  Serious: Yes (Hospitalization)
  Sender: FDA-Public Use
  Company Number: 1-16800373/MED-08199

PATIENT
  Age: 63 Year
  Sex: Female

DRUGS (1)
  1. BACTRIM DS [Suspect]
     Indication: SINUSITIS
     Dosage: UNK, UNK, ORAL
     Route: 048
     Dates: start: 20081027

REACTIONS (2)
  - HYPOTENSION [None]
  - PYREXIA [None]
